FAERS Safety Report 24732876 (Version 1)
Quarter: 2024Q4

REPORT INFORMATION
  Report Type: Spontaneous
  Country: FI (occurrence: FI)
  Receive Date: 20241213
  Receipt Date: 20241213
  Transmission Date: 20250114
  Serious: Yes (Life-Threatening)
  Sender: TEVA
  Company Number: None

PATIENT
  Age: 67 Year
  Sex: Female

DRUGS (2)
  1. ALLOPURINOL [Suspect]
     Active Substance: ALLOPURINOL
     Indication: Tumour lysis syndrome
     Dosage: 1X1X6
     Route: 048
     Dates: start: 20241101
  2. CLADRIBINE [Suspect]
     Active Substance: CLADRIBINE
     Indication: Hairy cell leukaemia
     Route: 042
     Dates: start: 20241028, end: 20241101

REACTIONS (2)
  - Drug reaction with eosinophilia and systemic symptoms [Recovered/Resolved]
  - Acute kidney injury [Recovered/Resolved]

NARRATIVE: CASE EVENT DATE: 20241101
